FAERS Safety Report 8843178 (Version 2)
Quarter: 2015Q3

REPORT INFORMATION
  Report Type: Report from Study
  Country: US (occurrence: US)
  Receive Date: 20121016
  Receipt Date: 20150813
  Transmission Date: 20151125
  Serious: Yes (Hospitalization, Other)
  Sender: FDA-Public Use
  Company Number: US-ROCHE-1140936

PATIENT
  Sex: Male
  Weight: 26.4 kg

DRUGS (4)
  1. NUTROPIN [Suspect]
     Active Substance: SOMATROPIN
     Indication: CHRONIC KIDNEY DISEASE
     Route: 058
     Dates: start: 19970506
  2. NUTROPIN [Suspect]
     Active Substance: SOMATROPIN
     Route: 058
  3. AMOXICILLIN. [Suspect]
     Active Substance: AMOXICILLIN
     Indication: SINUSITIS
     Route: 065
  4. NUTROPIN [Suspect]
     Active Substance: SOMATROPIN
     Route: 065

REACTIONS (4)
  - Haematuria [Unknown]
  - Blood creatinine increased [Unknown]
  - Weight decreased [Unknown]
  - Hydronephrosis [Unknown]
